FAERS Safety Report 21531999 (Version 1)
Quarter: 2022Q4

REPORT INFORMATION
  Report Type: Report from Study
  Country: US (occurrence: US)
  Receive Date: 20221101
  Receipt Date: 20221101
  Transmission Date: 20230113
  Serious: Yes (Other)
  Sender: FDA-Public Use
  Company Number: US-ABBVIE-4181722

PATIENT
  Age: 80 Year
  Sex: Female

DRUGS (1)
  1. IMBRUVICA [Suspect]
     Active Substance: IBRUTINIB
     Indication: Chronic lymphocytic leukaemia
     Route: 048
     Dates: start: 20221011

REACTIONS (8)
  - Leukaemia [Unknown]
  - Peripheral swelling [Unknown]
  - Illness [Unknown]
  - Decreased activity [Unknown]
  - Skin discolouration [Unknown]
  - Phlebitis [Unknown]
  - Gait inability [Unknown]
  - Rash macular [Unknown]

NARRATIVE: CASE EVENT DATE: 20221001
